FAERS Safety Report 8131154-1 (Version None)
Quarter: 2012Q1

REPORT INFORMATION
  Report Type: 
  Country: None (occurrence: None)
  Receive Date: 20120209
  Receipt Date: 20120209
  Transmission Date: 20120608
  Serious: Yes (Hospitalization)
  Sender: FDA-Public Use
  Company Number: None

PATIENT
  Age: 68 Year
  Sex: Female
  Weight: 62.5964 kg

DRUGS (2)
  1. PRAVASTATIN [Suspect]
     Indication: HYPERLIPIDAEMIA
     Dosage: 40MG/.DAY DAILY BY MOUTH
     Route: 048
     Dates: start: 20110905, end: 20110923
  2. PRAVASTATIN [Suspect]
     Indication: HYPERLIPIDAEMIA
     Dosage: 40MG/.DAY DAILY BY MOUTH
     Route: 048
     Dates: start: 20110928, end: 20111005

REACTIONS (3)
  - HEMIPLEGIA [None]
  - MUSCLE SPASMS [None]
  - MUSCULAR WEAKNESS [None]
